FAERS Safety Report 25086703 (Version 1)
Quarter: 2025Q1

REPORT INFORMATION
  Report Type: Spontaneous
  Country: FR (occurrence: FR)
  Receive Date: 20250318
  Receipt Date: 20250318
  Transmission Date: 20250409
  Serious: Yes (Other)
  Sender: RANBAXY
  Company Number: FR-AFSSAPS-LY2024001254

PATIENT
  Age: 54 Year
  Sex: Female
  Weight: 54 kg

DRUGS (1)
  1. PAROXETINE [Suspect]
     Active Substance: PAROXETINE
     Indication: Depression
     Dosage: 30 MILLIGRAM, DAILY
     Route: 048
     Dates: start: 20220506, end: 202303

REACTIONS (2)
  - Leukopenia [Recovered/Resolved]
  - Antidepressant drug level increased [Recovered/Resolved]

NARRATIVE: CASE EVENT DATE: 20230331
